FAERS Safety Report 10380326 (Version 1)
Quarter: 2014Q1

REPORT INFORMATION
  Report Type: Spontaneous
  Country: US (occurrence: None)
  Receive Date: 20140306
  Receipt Date: 20140306
  Transmission Date: 20141002
  Serious: Yes (Other)
  Sender: FDA-Public Use
  Company Number: 163-21880-13102050

PATIENT
  Age: 82 Year
  Sex: Female

DRUGS (4)
  1. REVLIMID (LENALIDOMIDE) (CAPSULES) [Suspect]
     Indication: PLASMA CELL MYELOMA
     Dosage: 20 MG, 21 IN 21 D, PO
     Route: 048
     Dates: start: 20130916, end: 20131010
  2. METFORMIN [Concomitant]
  3. AMLODIPINE [Concomitant]
  4. TRAMADOL [Concomitant]

REACTIONS (3)
  - Blood glucose increased [None]
  - Blood pressure decreased [None]
  - Thrombocytopenia [None]
